FAERS Safety Report 18507661 (Version 1)
Quarter: 2020Q4

REPORT INFORMATION
  Report Type: Spontaneous
  Country: US (occurrence: US)
  Receive Date: 20201116
  Receipt Date: 20201116
  Transmission Date: 20210114
  Serious: No
  Sender: FDA-Public Use
  Company Number: US-TAKEDA-2020TUS046682

PATIENT
  Sex: Male
  Weight: 86.17 kg

DRUGS (30)
  1. CUVITRU [Suspect]
     Active Substance: HUMAN IMMUNOGLOBULIN G
     Indication: IMMUNODEFICIENCY COMMON VARIABLE
     Dosage: 10 GRAM, 1/WEEK
     Route: 058
     Dates: start: 20201006
  2. ALBUTEROL [SALBUTAMOL] [Concomitant]
     Active Substance: ALBUTEROL
  3. MIRALAX [Concomitant]
     Active Substance: POLYETHYLENE GLYCOL 3350
  4. ALLEGRA [Concomitant]
     Active Substance: FEXOFENADINE HYDROCHLORIDE
  5. GLUCOSAMINE AND CHONDROITIN [Concomitant]
     Active Substance: CHONDROITIN SULFATE (BOVINE)\GLUCOSAMINE HYDROCHLORIDE
  6. OMEGA 3 [DOCOSAHEXAENOIC ACID;EICOSAPENTAENOIC ACID] [Concomitant]
     Active Substance: DOCONEXENT\ICOSAPENT
  7. SYMBICORT [Concomitant]
     Active Substance: BUDESONIDE\FORMOTEROL FUMARATE DIHYDRATE
  8. ACETAMINOPHEN. [Concomitant]
     Active Substance: ACETAMINOPHEN
  9. PRINIVIL [Concomitant]
     Active Substance: LISINOPRIL
  10. LIPITOR [Concomitant]
     Active Substance: ATORVASTATIN CALCIUM
  11. DIGESTIVE ENZYMES V COMPLEX [Concomitant]
  12. DIPHENHYDRAMINE. [Concomitant]
     Active Substance: DIPHENHYDRAMINE
  13. EPINEPHRINE. [Concomitant]
     Active Substance: EPINEPHRINE
  14. VALIUM [Concomitant]
     Active Substance: DIAZEPAM
  15. LEXAPRO [Concomitant]
     Active Substance: ESCITALOPRAM OXALATE
  16. VITAMIN D3 [Concomitant]
     Active Substance: CHOLECALCIFEROL
  17. ESTER C [ASCORBIC ACID] [Concomitant]
     Active Substance: ASCORBIC ACID
  18. COQ [Concomitant]
  19. FLONASE [Concomitant]
     Active Substance: FLUTICASONE PROPIONATE
  20. NEXIUM [Concomitant]
     Active Substance: ESOMEPRAZOLE MAGNESIUM
  21. TYLENOL [Concomitant]
     Active Substance: ACETAMINOPHEN
  22. PROBIOTIC [BIFIDOBACTERIUM INFANTIS;LACTOBACILLUS ACIDOPHILUS] [Concomitant]
  23. MUCINEX [Concomitant]
     Active Substance: GUAIFENESIN
  24. LMX4 [Concomitant]
     Active Substance: LIDOCAINE
  25. ATENOLOL. [Concomitant]
     Active Substance: ATENOLOL
  26. LYRICA [Concomitant]
     Active Substance: PREGABALIN
  27. REGLAN [Concomitant]
     Active Substance: METOCLOPRAMIDE HYDROCHLORIDE
  28. RESTASIS [Concomitant]
     Active Substance: CYCLOSPORINE
  29. PROSTATE COMPLEX [Concomitant]
  30. PROVIGIL [Concomitant]
     Active Substance: MODAFINIL

REACTIONS (1)
  - Infusion site haemorrhage [Unknown]
